FAERS Safety Report 7600914-5 (Version None)
Quarter: 2011Q3

REPORT INFORMATION
  Report Type: 
  Country: None (occurrence: None)
  Receive Date: 20110711
  Receipt Date: 20110704
  Transmission Date: 20111222
  Serious: Yes (Hospitalization, Other)
  Sender: FDA-Public Use
  Company Number: JP-ABBOTT-11P-087-0707000-00

PATIENT
  Sex: Female
  Weight: 58.1 kg

DRUGS (8)
  1. METHOTREXATE [Suspect]
     Indication: PRODUCT USED FOR UNKNOWN INDICATION
     Dosage: 6 MG/WEEK
     Dates: start: 20091126, end: 20100414
  2. FOLIC ACID [Concomitant]
     Indication: PROPHYLAXIS
     Route: 048
     Dates: start: 20101128, end: 20110225
  3. OMEPRAZOLE [Concomitant]
     Indication: PROPHYLAXIS AGAINST GASTROINTESTINAL ULCER
     Route: 048
     Dates: start: 20091024
  4. HUMIRA [Suspect]
     Indication: RHEUMATOID ARTHRITIS
     Route: 058
     Dates: start: 20091126, end: 20101112
  5. HUMIRA [Suspect]
     Dates: start: 20101126, end: 20110121
  6. MELOXICAM [Concomitant]
     Indication: RHEUMATOID ARTHRITIS
     Route: 048
     Dates: start: 20090925
  7. METHOTREXATE [Suspect]
     Dosage: 8 MG/WEEK
     Dates: start: 20100415, end: 20110223
  8. FOLIC ACID [Concomitant]
     Indication: ADVERSE DRUG REACTION

REACTIONS (5)
  - PARANASAL SINUS NEOPLASM [None]
  - SKIN MASS [None]
  - ERYTHEMA [None]
  - SCAR [None]
  - LIP AND/OR ORAL CAVITY CANCER [None]
